FAERS Safety Report 4630246-9 (Version None)
Quarter: 2005Q2

REPORT INFORMATION
  Report Type: 
  Country: None (occurrence: None)
  Receive Date: 20050408
  Receipt Date: 20040130
  Transmission Date: 20051028
  Serious: Yes (Death, Hospitalization)
  Sender: FDA-Public Use
  Company Number: 200410204JP

PATIENT
  Age: 77 Year
  Sex: Female
  Weight: 52.4 kg

DRUGS (8)
  1. ARAVA [Suspect]
     Indication: RHEUMATOID ARTHRITIS
     Route: 048
     Dates: start: 20031026, end: 20040101
  2. PREDONINE [Concomitant]
     Indication: RHEUMATOID ARTHRITIS
     Route: 048
     Dates: end: 20031231
  3. BENET [Concomitant]
     Indication: OSTEOPOROSIS
     Route: 048
     Dates: end: 20040107
  4. DEPAS [Concomitant]
     Indication: INSOMNIA
     Route: 048
     Dates: end: 20040107
  5. IDOMETHINE [Concomitant]
     Indication: RHEUMATOID ARTHRITIS
     Route: 062
  6. SELTOUCH [Concomitant]
     Indication: RHEUMATOID ARTHRITIS
     Route: 062
  7. NAPAGELN [Concomitant]
     Indication: RHEUMATOID ARTHRITIS
     Route: 062
  8. FAMOTIDINE [Concomitant]
     Indication: PROPHYLAXIS AGAINST GASTROINTESTINAL ULCER
     Route: 048
     Dates: end: 20040107

REACTIONS (5)
  - DIARRHOEA [None]
  - DYSPEPSIA [None]
  - INTERSTITIAL LUNG DISEASE [None]
  - PULMONARY FIBROSIS [None]
  - RENAL IMPAIRMENT [None]
